FAERS Safety Report 5018035-7 (Version None)
Quarter: 2006Q2

REPORT INFORMATION
  Report Type: 
  Country: None (occurrence: None)
  Receive Date: 20060530
  Receipt Date: 20050317
  Transmission Date: 20061013
  Serious: Yes (Hospitalization)
  Sender: FDA-Public Use
  Company Number: 2005045398

PATIENT
  Sex: Male

DRUGS (2)
  1. LYRICA [Suspect]
     Indication: EPILEPSY
     Dosage: 300 MG (150 MG, BI), ORAL
     Route: 048
  2. LEVETIRACETAM [Concomitant]

REACTIONS (1)
  - PSYCHOTIC DISORDER [None]
